FAERS Safety Report 6413624-7 (Version None)
Quarter: 2009Q4

REPORT INFORMATION
  Report Type: 
  Country: None (occurrence: None)
  Receive Date: 20091026
  Receipt Date: 20091019
  Transmission Date: 20100525
  Serious: No
  Sender: FDA-Public Use
  Company Number: US-B.I. PHARMACEUTICALS,INC./RIDGEFIELD-2009-BP-12141BP

PATIENT
  Age: 58 Year
  Sex: Male

DRUGS (1)
  1. FLOMAX [Suspect]
     Dosage: 0.4 MG
     Route: 048
     Dates: start: 20091006, end: 20091016

REACTIONS (5)
  - ABDOMINAL DISCOMFORT [None]
  - BACK PAIN [None]
  - HEPATIC PAIN [None]
  - NAUSEA [None]
  - RENAL PAIN [None]
